FAERS Safety Report 10677281 (Version 3)
Quarter: 2015Q1

REPORT INFORMATION
  Report Type: Spontaneous
  Country: US (occurrence: US)
  Receive Date: 20141226
  Receipt Date: 20150129
  Transmission Date: 20150720
  Serious: Yes (Life-Threatening, Hospitalization, Disabling)
  Sender: FDA-Public Use
  Company Number: US-MYLANLABS-2014M1014626

PATIENT

DRUGS (5)
  1. BENICAR [Concomitant]
     Active Substance: OLMESARTAN MEDOXOMIL
     Indication: HYPERTENSION
     Dosage: UNK
  2. TYLENOL [Concomitant]
     Active Substance: ACETAMINOPHEN
     Dosage: UNK
  3. ALLOPURINOL TABLETS, USP [Suspect]
     Active Substance: ALLOPURINOL
     Indication: PAIN IN EXTREMITY
  4. PRAVASTATIN [Concomitant]
     Active Substance: PRAVASTATIN\PRAVASTATIN SODIUM
     Indication: BLOOD CHOLESTEROL INCREASED
     Dosage: UNK
  5. ALLOPURINOL TABLETS, USP [Suspect]
     Active Substance: ALLOPURINOL
     Indication: GOUT
     Dosage: 300 MG, QD
     Route: 048
     Dates: start: 20131220, end: 201401

REACTIONS (18)
  - Disturbance in attention [Recovered/Resolved]
  - Hypersensitivity [Recovered/Resolved]
  - Hallucination [Recovered/Resolved]
  - Skin exfoliation [Recovered/Resolved]
  - Decreased appetite [Recovered/Resolved]
  - Retching [Recovered/Resolved]
  - Time perception altered [Recovered/Resolved]
  - Alopecia [Recovered/Resolved]
  - Gait disturbance [Not Recovered/Not Resolved]
  - Dehydration [Recovered/Resolved]
  - Dizziness [Recovered/Resolved]
  - Weight decreased [Recovered/Resolved]
  - Liver disorder [Recovered/Resolved]
  - Rash [Recovered/Resolved]
  - Somnambulism [Recovered/Resolved]
  - Fatigue [Recovered/Resolved]
  - Somnolence [Recovered/Resolved]
  - Thyroid disorder [Recovered/Resolved]

NARRATIVE: CASE EVENT DATE: 201312
